FAERS Safety Report 7805223-7 (Version None)
Quarter: 2011Q4

REPORT INFORMATION
  Report Type: 
  Country: None (occurrence: None)
  Receive Date: 20111010
  Receipt Date: 20111007
  Transmission Date: 20120403
  Serious: Yes (Hospitalization, Other)
  Sender: FDA-Public Use
  Company Number: US-TEVA-304092USA

PATIENT
  Sex: Male

DRUGS (1)
  1. CLARAVIS [Suspect]
     Dosage: 80 MILLIGRAM;
     Route: 048
     Dates: start: 20110728

REACTIONS (1)
  - SUICIDE ATTEMPT [None]
